FAERS Safety Report 15710304 (Version 1)
Quarter: 2018Q4

REPORT INFORMATION
  Report Type: Spontaneous
  Country: GB (occurrence: GB)
  Receive Date: 20181211
  Receipt Date: 20181211
  Transmission Date: 20190205
  Serious: Yes (Other)
  Sender: FDA-Public Use
  Company Number: GB-TEVA-2018-GB-985088

PATIENT
  Age: 47 Year
  Sex: Female

DRUGS (4)
  1. CERELLE [Concomitant]
     Active Substance: DESOGESTREL
  2. OMEPRAZOLE. [Concomitant]
     Active Substance: OMEPRAZOLE
  3. ATORVASTATIN [Concomitant]
     Active Substance: ATORVASTATIN
  4. ZEBETA [Suspect]
     Active Substance: BISOPROLOL FUMARATE
     Dosage: 1 DOSAGE FORMS DAILY;
     Route: 048
     Dates: start: 20181010, end: 20181108

REACTIONS (1)
  - Epistaxis [Not Recovered/Not Resolved]
